FAERS Safety Report 10370204 (Version 2)
Quarter: 2014Q4

REPORT INFORMATION
  Report Type: Report from Study
  Country: IN (occurrence: IN)
  Receive Date: 20140808
  Receipt Date: 20141222
  Transmission Date: 20150528
  Serious: Yes (Death, Other)
  Sender: FDA-Public Use
  Company Number: PHHY2014IN096519

PATIENT
  Age: 68 Year
  Sex: Female

DRUGS (1)
  1. GLIVEC [Suspect]
     Active Substance: IMATINIB MESYLATE
     Indication: CHRONIC MYELOID LEUKAEMIA
     Dosage: 400 MG
     Route: 048

REACTIONS (2)
  - Death [Fatal]
  - Lower limb fracture [Unknown]

NARRATIVE: CASE EVENT DATE: 20141203
